APPROVED DRUG PRODUCT: ADRUCIL
Active Ingredient: FLUOROURACIL
Strength: 50MG/ML **Federal Register determination that product was not discontinued or withdrawn for safety or effectiveness reasons**
Dosage Form/Route: INJECTABLE;INJECTION
Application: N017959 | Product #001
Applicant: PHARMACIA AND UPJOHN CO
Approved: Approved Prior to Jan 1, 1982 | RLD: Yes | RS: No | Type: DISCN